FAERS Safety Report 9729554 (Version 2)
Quarter: 2016Q1

REPORT INFORMATION
  Report Type: Spontaneous
  Country: US (occurrence: US)
  Receive Date: 20131204
  Receipt Date: 20160229
  Transmission Date: 20160526
  Serious: Yes (Other)
  Sender: FDA-Public Use
  Company Number: US-BAYER-2013-145646

PATIENT
  Age: 79 Year
  Sex: Female
  Weight: 54.42 kg

DRUGS (2)
  1. ALKA-SELTZER GOLD [Suspect]
     Active Substance: ANHYDROUS CITRIC ACID\POTASSIUM BICARBONATE\SODIUM BICARBONATE
     Indication: GASTROINTESTINAL DISORDER
  2. ALKA-SELTZER GOLD [Suspect]
     Active Substance: ANHYDROUS CITRIC ACID\POTASSIUM BICARBONATE\SODIUM BICARBONATE
     Indication: GASTROINTESTINAL PAIN
     Dosage: 2 DF, PRN
     Route: 048
     Dates: end: 20131124

REACTIONS (2)
  - Product use issue [None]
  - Immunodeficiency [Not Recovered/Not Resolved]
